FAERS Safety Report 4291941-7 (Version None)
Quarter: 2004Q1

REPORT INFORMATION
  Report Type: 
  Country: None (occurrence: None)
  Receive Date: 20040126
  Receipt Date: 20031029
  Transmission Date: 20041129
  Serious: No
  Sender: FDA-Public Use
  Company Number: USA030946774

PATIENT
  Age: 67 Year
  Sex: Female

DRUGS (4)
  1. FORTEO [Suspect]
     Indication: SPINAL COMPRESSION FRACTURE
     Dates: start: 20030101
  2. MIRAPEX (MIRAPEX) [Concomitant]
  3. SINEMET [Concomitant]
  4. PREVACID [Concomitant]

REACTIONS (2)
  - INJECTION SITE RASH [None]
  - VARICOSE VEIN [None]
